FAERS Safety Report 9254332 (Version 1)
Quarter: 2013Q1

REPORT INFORMATION
  Report Type: Spontaneous
  Country: US (occurrence: None)
  Receive Date: 20121210
  Receipt Date: 20121210
  Transmission Date: 20140127
  Serious: No
  Sender: FDA-Public Use
  Company Number: 1209USA010354

PATIENT
  Sex: Female

DRUGS (1)
  1. ZIOPTAN [Suspect]
     Indication: GLAUCOMA
     Dosage: 1 GTT, HS, OPHTHALAMIC
     Route: 047
     Dates: start: 201207

REACTIONS (1)
  - Arthralgia [None]
